FAERS Safety Report 16137969 (Version 1)
Quarter: 2019Q1

REPORT INFORMATION
  Report Type: Report from Study
  Country: ES (occurrence: ES)
  Receive Date: 20190330
  Receipt Date: 20190330
  Transmission Date: 20190418
  Serious: Yes (Life-Threatening, Other)
  Sender: FDA-Public Use
  Company Number: ES-VIIV HEALTHCARE LIMITED-ES2018GSK203488

PATIENT
  Age: 41 Year
  Sex: Male
  Weight: 81.3 kg

DRUGS (2)
  1. DOLUTEGRAVIR [Suspect]
     Active Substance: DOLUTEGRAVIR
     Indication: HIV INFECTION
     Dosage: UNK
     Dates: start: 20180521, end: 20181023
  2. LAMIVUDINE. [Suspect]
     Active Substance: LAMIVUDINE

REACTIONS (6)
  - Intentional dose omission [None]
  - Depression [None]
  - Symptom recurrence [None]
  - Fear [None]
  - Suicidal ideation [Not Recovered/Not Resolved]
  - Anxiety [None]

NARRATIVE: CASE EVENT DATE: 20181023
